FAERS Safety Report 11815622 (Version 4)
Quarter: 2015Q4

REPORT INFORMATION
  Report Type: Report from Study
  Country: AU (occurrence: AU)
  Receive Date: 20151209
  Receipt Date: 20151223
  Transmission Date: 20160305
  Serious: Yes (Hospitalization)
  Sender: FDA-Public Use
  Company Number: AU-ABBVIE-15P-008-1511899-00

PATIENT
  Age: 52 Year
  Sex: Male
  Weight: 90 kg

DRUGS (2)
  1. VIEKIRA PAK [Suspect]
     Active Substance: DASABUVIR\OMBITASVIR\PARITAPREVIR\RITONAVIR
     Indication: HEPATITIS C
     Dosage: DAILY, 2 MANE
     Route: 048
     Dates: start: 20151107
  2. RIBAVIRIN. [Suspect]
     Active Substance: RIBAVIRIN
     Indication: HEPATITIS C
     Dosage: 3 BD
     Route: 048
     Dates: start: 20151107

REACTIONS (17)
  - Malaise [Recovered/Resolved]
  - Pericarditis [Unknown]
  - Pain in jaw [Unknown]
  - Asthenia [Unknown]
  - Dyspnoea [Unknown]
  - Pallor [Unknown]
  - Feeling hot [Unknown]
  - Fatigue [Unknown]
  - Pericarditis [Recovered/Resolved]
  - Hyperhidrosis [Unknown]
  - Myalgia [Recovered/Resolved]
  - Feeling cold [Unknown]
  - Myalgia [Unknown]
  - Nausea [Unknown]
  - Pericardial effusion [Unknown]
  - Dust inhalation pneumopathy [Unknown]
  - Pain in extremity [Unknown]

NARRATIVE: CASE EVENT DATE: 20151125
